FAERS Safety Report 6108593-3 (Version None)
Quarter: 2009Q1

REPORT INFORMATION
  Report Type: 
  Country: None (occurrence: None)
  Receive Date: 20090305
  Receipt Date: 20090224
  Transmission Date: 20090719
  Serious: Yes (Other)
  Sender: FDA-Public Use
  Company Number: GXKR2009GB02319

PATIENT
  Age: 65 Year
  Sex: Male
  Weight: 77 kg

DRUGS (6)
  1. LISINOPRIL [Suspect]
     Indication: HYPERTENSION
     Dosage: 20 MG, ORAL
     Route: 048
     Dates: start: 20071017, end: 20090113
  2. AMLODIPINE [Concomitant]
  3. ACETYLSALICYLIC ACID SRT [Concomitant]
  4. CITALOPRAM HYDROBROMIDE [Concomitant]
  5. DOXAZOSIN       (DOXAZOSIN) [Concomitant]
  6. FENOFIBRATE [Concomitant]

REACTIONS (2)
  - GLOMERULAR FILTRATION RATE ABNORMAL [None]
  - TUBULOINTERSTITIAL NEPHRITIS [None]
